FAERS Safety Report 13301927 (Version 1)
Quarter: 2017Q1

REPORT INFORMATION
  Report Type: Spontaneous
  Country: US (occurrence: US)
  Receive Date: 20170307
  Receipt Date: 20170307
  Transmission Date: 20170428
  Serious: No
  Sender: FDA-Public Use
  Company Number: None

PATIENT
  Age: 37 Year
  Sex: Female
  Weight: 76.5 kg

DRUGS (3)
  1. LEVOTHYROXINE. [Concomitant]
     Active Substance: LEVOTHYROXINE
  2. BUPROPION. [Concomitant]
     Active Substance: BUPROPION
  3. BUPROPION XL 150MG 24HR [Suspect]
     Active Substance: BUPROPION
     Indication: DEPRESSION
     Dosage: ?          QUANTITY:1 TABLET(S);?
     Route: 048
     Dates: start: 20161101, end: 20170101

REACTIONS (4)
  - Product substitution issue [None]
  - Headache [None]
  - Agitation [None]
  - Abnormal behaviour [None]

NARRATIVE: CASE EVENT DATE: 20170105
